FAERS Safety Report 6894347-7 (Version None)
Quarter: 2010Q3

REPORT INFORMATION
  Report Type: 
  Country: None (occurrence: None)
  Receive Date: 20100802
  Receipt Date: 20100723
  Transmission Date: 20110219
  Serious: Yes (Disabling)
  Sender: FDA-Public Use
  Company Number: JP-ASTRAZENECA-2010SE34604

PATIENT
  Age: 24 Year
  Sex: Female

DRUGS (1)
  1. MARCAINE HYDROCHLORIDE PRESERVATIVE FREE [Suspect]
     Indication: SPINAL ANAESTHESIA
     Dosage: DOSE UNKNOWN
     Route: 029
     Dates: start: 20070101, end: 20070101

REACTIONS (2)
  - ANAPHYLACTOID SHOCK [None]
  - HYPOXIC-ISCHAEMIC ENCEPHALOPATHY [None]
